FAERS Safety Report 16450273 (Version 1)
Quarter: 2019Q3

REPORT INFORMATION
  Report Type: Spontaneous
  Country: US (occurrence: US)
  Receive Date: 20190618
  Receipt Date: 20190618
  Transmission Date: 20191004
  Serious: Yes (Other)
  Sender: FDA-Public Use
  Company Number: None

PATIENT
  Age: 78 Year
  Sex: Female
  Weight: 92.25 kg

DRUGS (1)
  1. ERBITUX [Suspect]
     Active Substance: CETUXIMAB
     Indication: COLON CANCER
     Dosage: ?          OTHER FREQUENCY:EVERY WEEK;?
     Route: 042
     Dates: start: 20190319, end: 20190618

REACTIONS (1)
  - Disease progression [None]

NARRATIVE: CASE EVENT DATE: 20190618
